FAERS Safety Report 5890522-9 (Version None)
Quarter: 2008Q3

REPORT INFORMATION
  Report Type: 
  Country: None (occurrence: None)
  Receive Date: 20080922
  Receipt Date: 20080911
  Transmission Date: 20090109
  Serious: Yes (Other)
  Sender: FDA-Public Use
  Company Number: PHHY2008BR20938

PATIENT
  Age: 65 Year
  Sex: Female

DRUGS (12)
  1. EXELON [Suspect]
     Dosage: 1.5 MG EVERY 12 HOURS
     Route: 048
  2. EXELON [Suspect]
     Dosage: 3  MG Q 12 HOURS
  3. EXELON [Suspect]
     Dosage: 1.5 MG
     Route: 048
     Dates: end: 20070301
  4. EXELON [Suspect]
     Dosage: 3 MG Q 12 HOURS
     Route: 048
     Dates: start: 20071101
  5. EXELON [Suspect]
     Dosage: 1.5 EVERY 12 HOURS
     Route: 048
  6. EXELON [Suspect]
     Dosage: 1.5 MG DAILY
     Route: 048
  7. EXELON [Suspect]
     Dosage: UNK
     Route: 048
  8. EXELON [Suspect]
     Dosage: UNK
  9. EXELON [Suspect]
     Dosage: 9 MG / 5CM 2 PATCH ADHESIVE DAILY
     Route: 062
  10. AKINETON [Concomitant]
     Indication: PARKINSONISM
     Dosage: UNK
     Route: 048
  11. AMANTADINE HCL [Concomitant]
     Indication: DEMENTIA
     Dosage: 3 TABLETS DAILY
     Route: 048
  12. HALDOL [Concomitant]
     Dosage: HALF TABLET IN THE MORNING AND HALF TABLET IN THE AFTERNOON
     Route: 048

REACTIONS (7)
  - AGITATION [None]
  - CEREBROVASCULAR ACCIDENT [None]
  - DEFORMITY [None]
  - GAIT DISTURBANCE [None]
  - NAUSEA [None]
  - SOMNOLENCE [None]
  - VOMITING [None]
